FAERS Safety Report 9406640 (Version 1)
Quarter: 2013Q3

REPORT INFORMATION
  Report Type: Spontaneous
  Country: DE (occurrence: DE)
  Receive Date: 20130718
  Receipt Date: 20130718
  Transmission Date: 20140515
  Serious: Yes (Other)
  Sender: FDA-Public Use
  Company Number: DE-BIOGENIDEC-2013BI065221

PATIENT
  Age: 0 Day
  Sex: Male

DRUGS (2)
  1. TYSABRI [Suspect]
     Indication: MATERNAL EXPOSURE TIMING UNSPECIFIED
     Route: 064
     Dates: start: 200712, end: 20120919
  2. TYSABRI [Suspect]
     Indication: MATERNAL EXPOSURE TIMING UNSPECIFIED
     Dates: start: 20130403

REACTIONS (2)
  - Low birth weight baby [Recovered/Resolved]
  - Premature baby [Recovered/Resolved]
